FAERS Safety Report 4518074-6 (Version None)
Quarter: 2004Q4

REPORT INFORMATION
  Report Type: 
  Country: None (occurrence: None)
  Receive Date: 20041203
  Receipt Date: 20041115
  Transmission Date: 20050328
  Serious: Yes (Hospitalization)
  Sender: FDA-Public Use
  Company Number: JP-GLAXOSMITHKLINE-B0357155A

PATIENT
  Age: 59 Year
  Sex: Female

DRUGS (6)
  1. ZOVIRAX [Suspect]
     Indication: ENCEPHALITIS
     Dosage: 250MG TWICE PER DAY
     Route: 042
     Dates: start: 20040612, end: 20040614
  2. DEPAKENE [Suspect]
     Indication: EPILEPSY
     Dosage: 4ML SEE DOSAGE TEXT
     Route: 048
     Dates: start: 20040602, end: 20040626
  3. MUCODYNE [Suspect]
     Indication: BRONCHITIS CHRONIC
     Dosage: 333MG THREE TIMES PER DAY
     Route: 048
     Dates: start: 20040620, end: 20040628
  4. ALEVIATIN [Concomitant]
     Route: 065
  5. MARZULENE [Concomitant]
     Route: 048
  6. SERMION [Concomitant]
     Route: 048

REACTIONS (6)
  - ALANINE AMINOTRANSFERASE INCREASED [None]
  - ASPARTATE AMINOTRANSFERASE INCREASED [None]
  - BLOOD ALKALINE PHOSPHATASE INCREASED [None]
  - BLOOD LACTATE DEHYDROGENASE INCREASED [None]
  - EPILEPSY [None]
  - HEPATIC FUNCTION ABNORMAL [None]
